FAERS Safety Report 5697884-6 (Version None)
Quarter: 2008Q2

REPORT INFORMATION
  Report Type: 
  Country: None (occurrence: None)
  Receive Date: 20080408
  Receipt Date: 20080407
  Transmission Date: 20081010
  Serious: Yes (Death)
  Sender: FDA-Public Use
  Company Number: CA-ASTRAZENECA-2008UW06882

PATIENT
  Age: 81 Year
  Sex: Male

DRUGS (9)
  1. SEROQUEL [Suspect]
     Route: 048
  2. GALANTAMINE HYDROBROMIDE [Concomitant]
  3. SPIRIVA [Concomitant]
  4. ADVAIR HFA [Concomitant]
  5. APO-FUROSEMIDE [Concomitant]
  6. RIVA-ALENDRONATE [Concomitant]
  7. RATIO-GLYBURIDE [Concomitant]
  8. UNIPHYL [Concomitant]
  9. APO-PREDNISONE [Concomitant]

REACTIONS (2)
  - COMPLETED SUICIDE [None]
  - HOMICIDE [None]
